FAERS Safety Report 6046931-0 (Version None)
Quarter: 2009Q1

REPORT INFORMATION
  Report Type: 
  Country: None (occurrence: None)
  Receive Date: 20090122
  Receipt Date: 20010410
  Transmission Date: 20090719
  Serious: Yes (Death)
  Sender: FDA-Public Use
  Company Number: FR-PFIZER INC-2008158222

PATIENT
  Age: 61 Year
  Sex: Male

DRUGS (4)
  1. NELFINAVIR MESILATE [Suspect]
     Dosage: UNK
     Route: 048
     Dates: start: 19980504, end: 20000301
  2. BACTRIM [Suspect]
     Indication: PROPHYLAXIS
     Route: 048
  3. COUMADIN [Suspect]
  4. COMBIVIR [Suspect]
     Dosage: UNK
     Route: 048
     Dates: start: 19980526, end: 20000301

REACTIONS (1)
  - DEATH [None]
